FAERS Safety Report 4378168-5 (Version None)
Quarter: 2004Q2

REPORT INFORMATION
  Report Type: 
  Country: None (occurrence: None)
  Receive Date: 20040615
  Receipt Date: 20040615
  Transmission Date: 20050107
  Serious: Yes (Hospitalization)
  Sender: FDA-Public Use
  Company Number: None

PATIENT
  Age: 74 Year
  Sex: Male
  Weight: 98.6 kg

DRUGS (12)
  1. OXALIPLATIN [Suspect]
     Indication: GASTRIC CANCER
     Dosage: 100 MG WEEKLY IV
     Route: 042
     Dates: start: 20040419
  2. OXALIPLATIN [Suspect]
     Indication: GASTRIC CANCER
     Dosage: 100 MG WEEKLY IV
     Route: 042
     Dates: start: 20040426
  3. FLUOROURACIL [Suspect]
     Indication: GASTRIC CANCER
     Dosage: 672 MG WEEKLY 15 DAYS IV
     Route: 042
     Dates: start: 20040419, end: 20040423
  4. FLUOROURACIL [Suspect]
     Indication: GASTRIC CANCER
     Dosage: 672 MG WEEKLY 15 DAYS IV
     Route: 042
     Dates: start: 20040426, end: 20040430
  5. FLUOROURACIL [Suspect]
  6. FOLATE [Concomitant]
  7. DIGITALIS [Concomitant]
  8. MIRAPEX [Concomitant]
  9. IRON SULFATETHIAMIN COMPOUND TAB [Concomitant]
  10. POTASSIUM CHLORIDE [Concomitant]
  11. EMMPOWER [Concomitant]
  12. ANBRACOSE [Concomitant]

REACTIONS (1)
  - ATRIAL FIBRILLATION [None]
